FAERS Safety Report 24906275 (Version 1)
Quarter: 2025Q1

REPORT INFORMATION
  Report Type: Report from Study
  Country: US (occurrence: US)
  Receive Date: 20250130
  Receipt Date: 20250130
  Transmission Date: 20250409
  Serious: Yes (Other)
  Sender: ALEXION PHARMACEUTICALS
  Company Number: US-ASTRAZENECA-202501USA021478US

PATIENT

DRUGS (1)
  1. STRENSIQ [Suspect]
     Active Substance: ASFOTASE ALFA
     Route: 065

REACTIONS (14)
  - Nephrocalcinosis [Unknown]
  - Nephrolithiasis [Unknown]
  - Failure to thrive [Unknown]
  - Pain in extremity [Unknown]
  - Hypermetropia [Unknown]
  - Diarrhoea [Unknown]
  - Fatigue [Unknown]
  - Asthenia [Unknown]
  - Bone deformity [Unknown]
  - Orthosis user [Unknown]
  - Injection site atrophy [Unknown]
  - Bone pain [Unknown]
  - Congenital bowing of long bones [Unknown]
  - Feeding tube user [Unknown]
